FAERS Safety Report 18791702 (Version 2)
Quarter: 2021Q2

REPORT INFORMATION
  Report Type: Spontaneous
  Country: US (occurrence: US)
  Receive Date: 20210127
  Receipt Date: 20210513
  Transmission Date: 20210717
  Serious: Yes (Other)
  Sender: FDA-Public Use
  Company Number: US-GILEAD-2021-0513349

PATIENT
  Age: 54 Year
  Sex: Male
  Weight: 83.9 kg

DRUGS (45)
  1. VIREAD [Suspect]
     Active Substance: TENOFOVIR DISOPROXIL FUMARATE
     Indication: HIV INFECTION
     Dosage: UNK
     Route: 048
     Dates: start: 2010
  2. VIREAD [Suspect]
     Active Substance: TENOFOVIR DISOPROXIL FUMARATE
     Dosage: UNK
     Route: 048
     Dates: start: 20160729, end: 20200326
  3. BIKTARVY [Concomitant]
     Active Substance: BICTEGRAVIR SODIUM\EMTRICITABINE\TENOFOVIR ALAFENAMIDE FUMARATE
  4. EPZICOM [Concomitant]
     Active Substance: ABACAVIR SULFATE\LAMIVUDINE
  5. ALLOPURINOL. [Concomitant]
     Active Substance: ALLOPURINOL
  6. AZELASTINE;FLUTICASONE [Concomitant]
     Active Substance: AZELASTINE HYDROCHLORIDE\FLUTICASONE PROPIONATE
  7. NAPROXEN. [Concomitant]
     Active Substance: NAPROXEN
  8. INTELENCE [Concomitant]
     Active Substance: ETRAVIRINE
  9. PREZCOBIX [Concomitant]
     Active Substance: COBICISTAT\DARUNAVIR ETHANOLATE
  10. AMOXICILLIN. [Concomitant]
     Active Substance: AMOXICILLIN
  11. BUSPIRONE [Concomitant]
     Active Substance: BUSPIRONE HYDROCHLORIDE
  12. FLUARIX NOS [Concomitant]
     Active Substance: INFLUENZA VIRUS VACCINE
  13. LISINOPRIL. [Concomitant]
     Active Substance: LISINOPRIL
  14. VIAGRA [Concomitant]
     Active Substance: SILDENAFIL CITRATE
  15. TIVICAY [Concomitant]
     Active Substance: DOLUTEGRAVIR SODIUM
  16. ACYCLOVIR [ACICLOVIR] [Concomitant]
     Active Substance: ACYCLOVIR
  17. BACTRIM DS [Concomitant]
     Active Substance: SULFAMETHOXAZOLE\TRIMETHOPRIM
  18. DULOXETINE. [Concomitant]
     Active Substance: DULOXETINE
  19. CYCLOBENZAPRINE. [Concomitant]
     Active Substance: CYCLOBENZAPRINE
  20. GABAPENTIN. [Concomitant]
     Active Substance: GABAPENTIN
  21. MELOXICAM. [Concomitant]
     Active Substance: MELOXICAM
  22. PIROXICAM. [Concomitant]
     Active Substance: PIROXICAM
  23. TRUVADA [Suspect]
     Active Substance: EMTRICITABINE\TENOFOVIR DISOPROXIL FUMARATE
     Indication: HIV INFECTION
     Dosage: UNK
     Route: 048
     Dates: start: 2010, end: 2012
  24. NORVIR [Concomitant]
     Active Substance: RITONAVIR
  25. CEPHALEXIN [CEFALEXIN] [Concomitant]
     Active Substance: CEPHALEXIN
  26. HYDROCODONE/ACETAMINOPHEN [Concomitant]
     Active Substance: ACETAMINOPHEN\HYDROCODONE
  27. TADALAFIL. [Concomitant]
     Active Substance: TADALAFIL
  28. PREZISTA [Concomitant]
     Active Substance: DARUNAVIR ETHANOLATE
  29. BACLOFEN. [Concomitant]
     Active Substance: BACLOFEN
  30. CHLORHEXIDINE [Concomitant]
     Active Substance: CHLORHEXIDINE
  31. CHLORPROMAZINE. [Concomitant]
     Active Substance: CHLORPROMAZINE
  32. LEVETIRACETAM. [Concomitant]
     Active Substance: LEVETIRACETAM
  33. VRAYLAR [Concomitant]
     Active Substance: CARIPRAZINE
  34. OMEGA?3 FATTY ACIDS [Concomitant]
     Active Substance: OMEGA-3 FATTY ACIDS
  35. PREDNISONE. [Concomitant]
     Active Substance: PREDNISONE
  36. SULFAMETHOXAZOLE;TRIMETHOPRIM [Concomitant]
     Active Substance: SULFAMETHOXAZOLE\TRIMETHOPRIM
  37. TRAZODONE [Concomitant]
     Active Substance: TRAZODONE HYDROCHLORIDE
  38. TRINTELLIX [Concomitant]
     Active Substance: VORTIOXETINE HYDROBROMIDE
  39. VAQTA [Concomitant]
     Active Substance: HEPATITIS A VIRUS STRAIN CR 326F ANTIGEN (FORMALDEHYDE INACTIVATED)
  40. ISENTRESS [Concomitant]
     Active Substance: RALTEGRAVIR POTASSIUM
  41. CITALOPRAM [Concomitant]
     Active Substance: CITALOPRAM HYDROBROMIDE
  42. LEVOFLOXACIN. [Concomitant]
     Active Substance: LEVOFLOXACIN
  43. LEVOTHYROXINE. [Concomitant]
     Active Substance: LEVOTHYROXINE
  44. OMEPRAZOLE. [Concomitant]
     Active Substance: OMEPRAZOLE
  45. VITAMIN E NOS [Concomitant]
     Active Substance: .ALPHA.-TOCOPHEROL

REACTIONS (5)
  - Anhedonia [Not Recovered/Not Resolved]
  - Anxiety [Not Recovered/Not Resolved]
  - Pain [Not Recovered/Not Resolved]
  - Emotional distress [Not Recovered/Not Resolved]
  - Chronic kidney disease [Not Recovered/Not Resolved]

NARRATIVE: CASE EVENT DATE: 20161207
